FAERS Safety Report 5622335-7 (Version None)
Quarter: 2008Q1

REPORT INFORMATION
  Report Type: 
  Country: None (occurrence: None)
  Receive Date: 20080211
  Receipt Date: 20080206
  Transmission Date: 20080703
  Serious: Yes (Hospitalization)
  Sender: FDA-Public Use
  Company Number: US-PFIZER INC-2008005876

PATIENT
  Sex: Female
  Weight: 82.6 kg

DRUGS (16)
  1. DETROL LA [Suspect]
     Route: 048
     Dates: start: 20051011, end: 20080115
  2. S,S-REBOXETINE SUCCINATE [Suspect]
     Indication: DIABETIC NEUROPATHY
     Route: 048
  3. LEXAPRO [Suspect]
     Route: 048
     Dates: start: 20071230
  4. THIAMINE [Concomitant]
     Route: 048
  5. FOLIC ACID [Concomitant]
     Route: 048
     Dates: start: 19870101
  6. VITAMIN CAP [Concomitant]
     Route: 048
     Dates: start: 19870101
  7. LISINOPRIL [Concomitant]
     Route: 048
     Dates: start: 20020101, end: 20080115
  8. VERAPAMIL [Concomitant]
     Route: 048
     Dates: start: 20070608, end: 20080115
  9. K-DUR 10 [Concomitant]
     Route: 048
     Dates: start: 19870101
  10. MAGNESIUM OXIDE [Concomitant]
     Route: 048
     Dates: start: 20060101
  11. SYNTHROID [Concomitant]
     Route: 048
     Dates: start: 20050101
  12. AMITIZA [Concomitant]
     Route: 048
     Dates: start: 20071114
  13. CYANOCOBALAMIN [Concomitant]
     Route: 030
     Dates: start: 19870101
  14. HYDROCHLOROTHIAZIDE [Concomitant]
     Route: 048
     Dates: start: 20050101, end: 20071227
  15. METOPROLOL TARTRATE [Concomitant]
     Route: 048
     Dates: start: 20080114, end: 20080116
  16. ASPIRIN [Concomitant]
     Route: 048
     Dates: start: 20080104

REACTIONS (2)
  - HYPOTENSION [None]
  - SINUS TACHYCARDIA [None]
